FAERS Safety Report 13931852 (Version 1)
Quarter: 2017Q3

REPORT INFORMATION
  Report Type: Spontaneous
  Country: US (occurrence: US)
  Receive Date: 20170904
  Receipt Date: 20170904
  Transmission Date: 20171127
  Serious: No
  Sender: FDA-Public Use
  Company Number: US-B.I. PHARMACEUTICALS,INC./RIDGEFIELD-2017-BI-047560

PATIENT
  Sex: Male

DRUGS (3)
  1. ATROVENT [Suspect]
     Active Substance: IPRATROPIUM BROMIDE
     Indication: PRODUCT USED FOR UNKNOWN INDICATION
     Dosage: 4 PUFFS EVERY 6 HOURS;  FORM STRENGTH: 17 MCG; FORMULATION: INHALATION AEROSOL? ADMINISTRATION CORRE
     Dates: end: 2017
  2. ATROVENT [Suspect]
     Active Substance: IPRATROPIUM BROMIDE
     Dosage: 4 PUFFS EVERY 6 HOURS;  FORM STRENGTH: 17MCG; FORMULATION: INHALATION AEROSOL? ADMINISTRATION CORREC
     Dates: start: 2017, end: 2017
  3. ATROVENT [Suspect]
     Active Substance: IPRATROPIUM BROMIDE
     Dosage: 4 PUFFS  EVERY 4 HOURS;  FORM STRENGTH: 17MCG; FORMULATION: INHALATION AEROSOL? ADMINISTRATION CORRE
     Dates: start: 2017, end: 2017

REACTIONS (1)
  - Medication error [Unknown]
